FAERS Safety Report 16508440 (Version 1)
Quarter: 2019Q3

REPORT INFORMATION
  Report Type: Spontaneous
  Country: US (occurrence: US)
  Receive Date: 20190702
  Receipt Date: 20190702
  Transmission Date: 20191004
  Serious: No
  Sender: FDA-Public Use
  Company Number: US-ROCHE-2266138

PATIENT
  Sex: Female

DRUGS (9)
  1. CAPECITABINE. [Suspect]
     Active Substance: CAPECITABINE
     Indication: BREAST CANCER
     Dosage: SPLIT BID (2000MG BID) DAYS 1-14 OF 21 DAY CYCLE.
     Route: 065
  2. CAPECITABINE. [Suspect]
     Active Substance: CAPECITABINE
     Dosage: CYCLE 2 DOSE REDUCED
     Route: 065
  3. SENNA [SENNA ALEXANDRINA] [Concomitant]
     Active Substance: SENNA LEAF
  4. PALBOCICLIB [Concomitant]
     Active Substance: PALBOCICLIB
  5. ZOLEDRONIC ACID. [Concomitant]
     Active Substance: ZOLEDRONIC ACID
  6. CAPECITABINE. [Suspect]
     Active Substance: CAPECITABINE
     Dosage: CYCLE 2 DOSE REDUCED
     Route: 065
  7. CAPECITABINE. [Suspect]
     Active Substance: CAPECITABINE
     Dosage: 5/2017 DECREASED
     Route: 065
  8. EXEMESTANE. [Concomitant]
     Active Substance: EXEMESTANE
     Route: 065
  9. FULVESTRANT. [Concomitant]
     Active Substance: FULVESTRANT

REACTIONS (1)
  - Palmar-plantar erythrodysaesthesia syndrome [Unknown]
